FAERS Safety Report 21306273 (Version 1)
Quarter: 2022Q3

REPORT INFORMATION
  Report Type: Other
  Country: US (occurrence: None)
  Receive Date: 20220908
  Receipt Date: 20220908
  Transmission Date: 20221027
  Serious: Yes (Death)
  Sender: FDA-Public Use
  Company Number: US-ROCHE-3175045

PATIENT
  Sex: Male

DRUGS (1)
  1. GAVRETO [Suspect]
     Active Substance: PRALSETINIB
     Indication: Pancreatic carcinoma
     Dosage: TAKE 4 CAPSULE(S) BY MOUTH ONCE A DAY, ON AN EMPTY STOMACH
     Route: 048

REACTIONS (2)
  - Death [Fatal]
  - Off label use [Unknown]
